FAERS Safety Report 7946744-6 (Version None)
Quarter: 2011Q4

REPORT INFORMATION
  Report Type: 
  Country: None (occurrence: None)
  Receive Date: 20111129
  Receipt Date: 20111124
  Transmission Date: 20120403
  Serious: Yes (Hospitalization)
  Sender: FDA-Public Use
  Company Number: GXKR2011DE003412

PATIENT

DRUGS (9)
  1. AMLODIPINE [Suspect]
     Dosage: 10 MG, UNK
     Route: 048
  2. LITHIUM CARBONATE [Interacting]
     Dosage: 900 MG, UNK
     Route: 048
     Dates: end: 20110401
  3. DIOVAN [Concomitant]
     Dosage: 320 MG, UNK
     Route: 048
  4. LEVOTHYROXINE SODIUM [Concomitant]
     Dosage: 50 UG, UNK
     Route: 048
  5. ASPIRIN [Interacting]
     Dosage: 100 MG, UNK
     Route: 048
  6. PANTOPRAZOLE SODIUM [Concomitant]
     Dosage: 40 MG, UNK
     Route: 048
  7. HYDROCHLOROTHIAZIDE [Interacting]
     Dosage: 25 MG, UNK
     Route: 048
     Dates: end: 20110328
  8. JODID [Concomitant]
     Dosage: 150 MG, UNK
     Route: 048
  9. METOPROLOL SUCCINATE [Concomitant]
     Dosage: 95 MG, UNK
     Route: 048

REACTIONS (10)
  - TOXICITY TO VARIOUS AGENTS [None]
  - ILLUSION [None]
  - HEADACHE [None]
  - LISTLESS [None]
  - CLONUS [None]
  - DRUG INTERACTION [None]
  - DEPRESSED MOOD [None]
  - DEPRESSED LEVEL OF CONSCIOUSNESS [None]
  - DISORIENTATION [None]
  - TREMOR [None]
